FAERS Safety Report 5729659-3 (Version None)
Quarter: 2008Q2

REPORT INFORMATION
  Report Type: 
  Country: None (occurrence: None)
  Receive Date: 20080501
  Receipt Date: 20080423
  Transmission Date: 20081010
  Serious: Yes (Other)
  Sender: FDA-Public Use
  Company Number: GXKR2008GB03900

PATIENT
  Age: 63 Year
  Sex: Male

DRUGS (2)
  1. SIMVASTATIN [Suspect]
     Dosage: 20 MG
  2. ATORVASTATIN CALCIUM [Suspect]
     Dosage: 20 MG
     Dates: start: 20060101

REACTIONS (10)
  - BALANCE DISORDER [None]
  - DEPRESSION [None]
  - DIARRHOEA [None]
  - ERECTILE DYSFUNCTION [None]
  - FATIGUE [None]
  - IRRITABILITY [None]
  - MEMORY IMPAIRMENT [None]
  - MOOD ALTERED [None]
  - MYALGIA [None]
  - NAUSEA [None]
